FAERS Safety Report 16710902 (Version 2)
Quarter: 2019Q3

REPORT INFORMATION
  Report Type: Spontaneous
  Country: IN (occurrence: IN)
  Receive Date: 20190816
  Receipt Date: 20190820
  Transmission Date: 20191004
  Serious: Yes (Death, Other)
  Sender: FDA-Public Use
  Company Number: IN-PFIZER INC-2019351744

PATIENT
  Age: 30 Year
  Sex: Male
  Weight: 71 kg

DRUGS (4)
  1. NEBIPIL [Concomitant]
     Indication: HYPERTENSION
     Dosage: UNK
     Route: 048
     Dates: start: 20190525
  2. MEDROL [Suspect]
     Active Substance: METHYLPREDNISOLONE
     Dosage: 20 MG, UNK
     Dates: start: 20190725
  3. MEDROL [Suspect]
     Active Substance: METHYLPREDNISOLONE
     Dosage: 24 MG, UNK
     Dates: start: 20190624
  4. MEDROL [Suspect]
     Active Substance: METHYLPREDNISOLONE
     Dosage: 28 MG, UNK
     Dates: start: 20190428

REACTIONS (12)
  - Abdominal infection [Unknown]
  - Cardio-respiratory arrest [Fatal]
  - Nausea [Fatal]
  - Septic shock [Fatal]
  - Sepsis [Fatal]
  - Blood pressure fluctuation [Unknown]
  - Vomiting [Unknown]
  - Bacterial infection [Unknown]
  - Hyperglycaemia [Unknown]
  - Diabetic ketoacidosis [Not Recovered/Not Resolved]
  - Hypotension [Unknown]
  - Diarrhoea [Unknown]

NARRATIVE: CASE EVENT DATE: 20190811
